FAERS Safety Report 9275871 (Version 1)
Quarter: 2012Q4

REPORT INFORMATION
  Report Type: Spontaneous
  Country: CA (occurrence: None)
  Receive Date: 20121109
  Receipt Date: 20121109
  Transmission Date: 20130627
  Serious: Yes (Life-Threatening, Hospitalization, Disabling)
  Sender: FDA-Public Use
  Company Number: 2011S1000690

PATIENT
  Age: 82 Year
  Sex: Female

DRUGS (16)
  1. CUBICIN [Suspect]
     Indication: SKIN INFECTION
     Route: 042
     Dates: start: 20111003, end: 20111010
  2. COUMADIN [Concomitant]
  3. AMIODARONE [Concomitant]
  4. MONOCOR [Concomitant]
  5. CALCITE [Concomitant]
  6. NEXIUM [Concomitant]
  7. XALANTAN [Concomitant]
  8. SYNTHROID [Concomitant]
  9. GLUCOPHAGE [Concomitant]
  10. FORZA-10 [Concomitant]
  11. OXAZEPAM [Concomitant]
  12. VITAMIN B12 NOS [Concomitant]
  13. DILANUDID /00080902/ [Concomitant]
  14. TYLENOL [Concomitant]
  15. BENADRYL [Concomitant]
  16. PRAVACHOL [Concomitant]

REACTIONS (1)
  - Normochromic normocytic anaemia [None]
